FAERS Safety Report 6833407-3 (Version None)
Quarter: 2010Q3

REPORT INFORMATION
  Report Type: 
  Country: None (occurrence: None)
  Receive Date: 20100712
  Receipt Date: 20070323
  Transmission Date: 20110219
  Serious: No
  Sender: FDA-Public Use
  Company Number: US-PFIZER INC-2007025079

PATIENT
  Sex: Male
  Weight: 90.72 kg

DRUGS (3)
  1. CHANTIX [Suspect]
     Indication: SMOKING CESSATION THERAPY
     Route: 048
     Dates: start: 20070314
  2. ZESTRIL [Concomitant]
  3. VERAPAMIL [Concomitant]

REACTIONS (4)
  - HOT FLUSH [None]
  - HYPERHIDROSIS [None]
  - INCORRECT DOSE ADMINISTERED [None]
  - MALAISE [None]
